FAERS Safety Report 16180278 (Version 1)
Quarter: 2019Q2

REPORT INFORMATION
  Report Type: Report from Study
  Country: US (occurrence: US)
  Receive Date: 20190410
  Receipt Date: 20190410
  Transmission Date: 20190711
  Serious: Yes (Other)
  Sender: FDA-Public Use
  Company Number: US-GILEAD-2019-0401486

PATIENT
  Age: 62 Year
  Sex: Female

DRUGS (2)
  1. UPTRAVI [Concomitant]
     Active Substance: SELEXIPAG
  2. AMBRISENTAN [Suspect]
     Active Substance: AMBRISENTAN
     Indication: PRODUCT USED FOR UNKNOWN INDICATION
     Dosage: 10 MG, QD
     Route: 065
     Dates: start: 20080407

REACTIONS (6)
  - Cardiac failure [Unknown]
  - Scleroderma [Unknown]
  - Condition aggravated [Not Recovered/Not Resolved]
  - Interstitial lung disease [Unknown]
  - Dyspnoea [Not Recovered/Not Resolved]
  - Palpitations [Not Recovered/Not Resolved]
